FAERS Safety Report 24217914 (Version 2)
Quarter: 2024Q4

REPORT INFORMATION
  Report Type: Report from Study
  Country: JP (occurrence: JP)
  Receive Date: 20240816
  Receipt Date: 20241004
  Transmission Date: 20250115
  Serious: Yes (Death, Hospitalization, Other)
  Sender: AKEBIA THERAPEUTICS
  Company Number: JP-MTPC-MTPC2021-0030699

PATIENT
  Age: 93 Year
  Sex: Female
  Weight: 37.4 kg

DRUGS (15)
  1. VADADUSTAT [Suspect]
     Active Substance: VADADUSTAT
     Indication: Nephrogenic anaemia
     Dosage: 300 MILLIGRAM, QD
     Route: 048
     Dates: start: 20210818, end: 20210831
  2. VADADUSTAT [Suspect]
     Active Substance: VADADUSTAT
     Dosage: 450 MILLIGRAM, QD
     Route: 048
     Dates: start: 20210901, end: 20210914
  3. VADADUSTAT [Suspect]
     Active Substance: VADADUSTAT
     Dosage: 600 MILLIGRAM, QD
     Route: 048
     Dates: start: 20210915, end: 20220913
  4. EDOXABAN TOSYLATE [Suspect]
     Active Substance: EDOXABAN TOSYLATE
     Indication: Illness
     Dosage: 30 MILLIGRAM, QD
     Route: 048
     Dates: end: 20211119
  5. AZOSEMIDE [Concomitant]
     Active Substance: AZOSEMIDE
     Indication: Product used for unknown indication
     Dosage: 30 MILLIGRAM, QD
     Route: 048
     Dates: start: 20211029, end: 20220630
  6. AZOSEMIDE [Concomitant]
     Active Substance: AZOSEMIDE
     Dosage: 60 MILLIGRAM, QD
     Route: 048
     Dates: start: 20220701, end: 20220921
  7. METHOXY POLYETHYLENE GLYCOL-EPOETIN BETA [Concomitant]
     Active Substance: METHOXY POLYETHYLENE GLYCOL-EPOETIN BETA
     Indication: Nephrogenic anaemia
     Dosage: 50 MICROGRAM, MONTHLY
     Route: 042
     Dates: end: 20210714
  8. IRON SUCROSE [Concomitant]
     Active Substance: IRON SUCROSE
     Indication: Nephrogenic anaemia
     Dosage: 40 MILLIGRAM, QD
     Route: 051
  9. IRON SUCROSE [Concomitant]
     Active Substance: IRON SUCROSE
     Dosage: 80 MILLIGRAM, QD
     Route: 051
     Dates: end: 20220701
  10. AMLODIPINE\TELMISARTAN [Concomitant]
     Active Substance: AMLODIPINE\TELMISARTAN
     Indication: Product used for unknown indication
     Dosage: 1 DOSAGE FORM, QD
     Route: 048
     Dates: end: 20220630
  11. FEBUXOSTAT [Concomitant]
     Active Substance: FEBUXOSTAT
     Indication: Illness
     Dosage: 20 MILLIGRAM, QD
     Route: 048
     Dates: end: 20220315
  12. LEVOTHYROXINE SODIUM [Concomitant]
     Active Substance: LEVOTHYROXINE SODIUM
     Indication: Illness
     Dosage: 25 MICROGRAM, QD
     Route: 048
     Dates: end: 20220913
  13. NEXIUM [Concomitant]
     Active Substance: ESOMEPRAZOLE MAGNESIUM
     Indication: Illness
     Dosage: 20 MILLIGRAM, QD
     Route: 048
     Dates: end: 20220913
  14. URSODIOL [Concomitant]
     Active Substance: URSODIOL
     Indication: Illness
     Dosage: 300 MILLIGRAM, QD
     Route: 048
     Dates: end: 20211008
  15. UNSPECIFIED INGREDIENT [Concomitant]
     Active Substance: UNSPECIFIED INGREDIENT
     Indication: Illness
     Dosage: 3 DOSAGE FORM, QD
     Route: 048
     Dates: end: 20211008

REACTIONS (6)
  - Mallory-Weiss syndrome [Recovered/Resolved]
  - Cardiac failure chronic [Not Recovered/Not Resolved]
  - Pancreatic carcinoma [Fatal]
  - Gastrointestinal haemorrhage [Recovered/Resolved]
  - Blood iron decreased [Recovered/Resolved]
  - Iron binding capacity total increased [Recovered/Resolved]

NARRATIVE: CASE EVENT DATE: 20210929
